FAERS Safety Report 21855040 (Version 1)
Quarter: 2023Q1

REPORT INFORMATION
  Report Type: Spontaneous
  Country: US (occurrence: None)
  Receive Date: 20230112
  Receipt Date: 20230112
  Transmission Date: 20230418
  Serious: No
  Sender: FDA-Public Use
  Company Number: None

PATIENT
  Age: 62 Year
  Sex: Male
  Weight: 76.5 kg

DRUGS (1)
  1. LATANOPROST [Suspect]
     Active Substance: LATANOPROST
     Indication: Intraocular pressure increased
     Dosage: FREQUENCY : AT BEDTIME;?OTHER ROUTE : I DROP IN EACH EYE;?
     Route: 050
     Dates: start: 20220131, end: 20221220

REACTIONS (2)
  - Intraocular pressure increased [None]
  - Product substitution issue [None]
